FAERS Safety Report 9563980 (Version 2)
Quarter: 2013Q3

REPORT INFORMATION
  Report Type: Report from Study
  Country: GB (occurrence: GB)
  Receive Date: 20130928
  Receipt Date: 20130928
  Transmission Date: 20140515
  Serious: Yes (Other)
  Sender: FDA-Public Use
  Company Number: GB-009507513-1309GBR005726

PATIENT
  Age: 53 Year
  Sex: Male

DRUGS (3)
  1. PEGINTERFERON ALFA-2B [Suspect]
     Indication: HEPATITIS C
     Dosage: UNK
     Route: 058
     Dates: start: 20130109
  2. RIBAVIRIN [Suspect]
     Indication: HEPATITIS C
     Dosage: UNK
     Route: 048
     Dates: start: 20130109
  3. TELAPREVIR [Suspect]
     Indication: HEPATITIS C
     Dosage: UNK
     Route: 048
     Dates: start: 20130109

REACTIONS (3)
  - Rash [Not Recovered/Not Resolved]
  - Malaise [Not Recovered/Not Resolved]
  - Headache [Not Recovered/Not Resolved]
